FAERS Safety Report 7632856-3 (Version None)
Quarter: 2011Q3

REPORT INFORMATION
  Report Type: 
  Country: None (occurrence: None)
  Receive Date: 20110725
  Receipt Date: 20110712
  Transmission Date: 20111222
  Serious: Yes (Hospitalization, Other)
  Sender: FDA-Public Use
  Company Number: PHHY2011DE16279

PATIENT
  Sex: Male
  Weight: 94 kg

DRUGS (17)
  1. ASPIRIN [Concomitant]
     Indication: PLATELET AGGREGATION
     Dosage: 100 MG, QD
     Route: 048
     Dates: start: 20040719
  2. EZETIMIBE [Concomitant]
     Indication: DYSLIPIDAEMIA
     Dosage: 1 DF, QD
     Route: 048
     Dates: start: 20080815
  3. OMEPRAZOLE [Concomitant]
     Indication: OESOPHAGITIS
     Dosage: 20 MG, QD
     Route: 048
     Dates: start: 20050907, end: 20101019
  4. DIURETICS [Concomitant]
     Dosage: UNK UKN, UNK
  5. MOXONIDINE [Concomitant]
     Indication: HYPERTENSION
     Dosage: 0.4 MG, QD
     Route: 048
     Dates: start: 20100421, end: 20101019
  6. METOPROLOL SUCCINATE [Concomitant]
     Indication: HYPERTENSION
     Dosage: 95 MG, QD
     Route: 048
     Dates: start: 20071011
  7. EFFIENT [Concomitant]
     Indication: PLATELET AGGREGATION
     Dosage: 10 MG, QD
     Route: 048
     Dates: start: 20100601
  8. RAMIPRIL [Concomitant]
     Dosage: 5 MG, UNK
     Route: 048
     Dates: start: 20040913
  9. ANGIOTENSIN CONVERTING ENZYME BLOCKERS [Concomitant]
     Indication: HYPERTENSION
     Dosage: UNK UKN, UNK
     Dates: start: 20100401
  10. NITRATES [Concomitant]
     Dosage: UNK UKN, UNK
  11. CALCIUM CHANNEL BLOCKERS [Concomitant]
     Dosage: UNK UKN, UNK
     Dates: end: 20100301
  12. SYMBICORT [Concomitant]
     Indication: ASTHMA
     Dosage: 1 DF, QD
     Dates: start: 20050406
  13. ALISKIREN [Suspect]
     Indication: HYPERTENSION
     Dosage: 150 MG, QD
     Route: 048
     Dates: start: 20100301
  14. DELIX PLUS [Concomitant]
     Dosage: 5 MG, UNK
     Route: 048
     Dates: start: 20040913
  15. DELIX PLUS [Concomitant]
     Dosage: 5 MG, UNK
     Route: 048
     Dates: start: 20060823
  16. CANDESARTAN CILEXETIL AND HYDROCHLOROTHIAZIDE [Concomitant]
     Indication: HYPERTENSION
     Dosage: 1 DF, QD
     Route: 048
     Dates: start: 20100301
  17. THIENOPYRIDINE [Concomitant]
     Dosage: UNK UKN, UNK

REACTIONS (6)
  - ANGINA PECTORIS [None]
  - PANIC ATTACK [None]
  - HYPERTENSION [None]
  - DYSPNOEA [None]
  - CARDIAC FAILURE [None]
  - ABDOMINAL DISCOMFORT [None]
